FAERS Safety Report 4578712-9 (Version None)
Quarter: 2005Q1

REPORT INFORMATION
  Report Type: 
  Country: None (occurrence: None)
  Receive Date: 20050211
  Receipt Date: 20041206
  Transmission Date: 20050727
  Serious: Yes (Hospitalization)
  Sender: FDA-Public Use
  Company Number: US-GLAXOSMITHKLINE-A0536062A

PATIENT
  Age: 71 Year
  Sex: Male

DRUGS (5)
  1. ROPINIROLE [Suspect]
     Indication: PARKINSON'S DISEASE
     Route: 048
  2. KEFLEX [Concomitant]
     Indication: INFECTION
     Route: 048
  3. ZITHROMAX [Concomitant]
     Indication: INFECTION
     Route: 048
     Dates: start: 20041106, end: 20041107
  4. PRILOSEC [Concomitant]
  5. BACTRIM DS [Concomitant]
     Indication: INFECTION
     Route: 048
     Dates: start: 20041120

REACTIONS (7)
  - AGGRESSION [None]
  - CEREBRAL ATROPHY [None]
  - HALLUCINATION, VISUAL [None]
  - PARANOIA [None]
  - PSYCHOTIC DISORDER [None]
  - URINARY TRACT INFECTION [None]
  - VASCULAR CALCIFICATION [None]
